FAERS Safety Report 9411820 (Version 1)
Quarter: 2013Q3

REPORT INFORMATION
  Report Type: Spontaneous
  Country: US (occurrence: None)
  Receive Date: 20130719
  Receipt Date: 20130719
  Transmission Date: 20140515
  Serious: No
  Sender: FDA-Public Use
  Company Number: None

PATIENT
  Sex: Female
  Weight: 74.39 kg

DRUGS (1)
  1. TOPAMAX [Suspect]
     Indication: GRAND MAL CONVULSION
     Route: 048

REACTIONS (1)
  - Convulsion [None]
